FAERS Safety Report 4703790-3 (Version None)
Quarter: 2005Q2

REPORT INFORMATION
  Report Type: 
  Country: None (occurrence: None)
  Receive Date: 20050629
  Receipt Date: 20050629
  Transmission Date: 20051028
  Serious: Yes (Other)
  Sender: FDA-Public Use
  Company Number: None

PATIENT
  Age: 39 Year
  Sex: Female
  Weight: 113.3993 kg

DRUGS (5)
  1. LEVAQUIN [Suspect]
     Indication: EAR INFECTION
     Dosage: 1   PER DAY   ORAL
     Route: 048
     Dates: start: 20040413, end: 20040420
  2. LEVAQUIN [Suspect]
     Indication: SINUSITIS
     Dosage: 1   PER DAY   ORAL
     Route: 048
     Dates: start: 20040413, end: 20040420
  3. LEVAQUIN [Suspect]
     Indication: EAR INFECTION
     Dosage: 1   PER DAY   ORAL
     Route: 048
     Dates: start: 20040227, end: 20040307
  4. LEVAQUIN [Suspect]
     Indication: SINUSITIS
     Dosage: 1   PER DAY   ORAL
     Route: 048
     Dates: start: 20040227, end: 20040307
  5. LOZAL [Concomitant]

REACTIONS (8)
  - ARTHRALGIA [None]
  - ARTHRITIS [None]
  - CHONDROPATHY [None]
  - HEADACHE [None]
  - HYPOAESTHESIA [None]
  - PAIN IN EXTREMITY [None]
  - PALPITATIONS [None]
  - PLANTAR FASCIITIS [None]
